FAERS Safety Report 9868936 (Version 7)
Quarter: 2015Q4

REPORT INFORMATION
  Report Type: Spontaneous
  Country: JP (occurrence: JP)
  Receive Date: 20140204
  Receipt Date: 20151215
  Transmission Date: 20160305
  Serious: Yes (Other)
  Sender: FDA-Public Use
  Company Number: JP-ROCHE-1344121

PATIENT
  Age: 39 Year
  Sex: Female
  Weight: 55.07 kg

DRUGS (5)
  1. XOLAIR [Suspect]
     Active Substance: OMALIZUMAB
     Indication: ASTHMA
     Route: 058
     Dates: start: 20120927, end: 20130902
  2. ADOAIR [Concomitant]
     Active Substance: FLUTICASONE PROPIONATE\SALMETEROL XINAFOATE
     Route: 065
  3. FERRUM (JAPAN) [Concomitant]
  4. THEO-DUR [Concomitant]
     Active Substance: THEOPHYLLINE ANHYDROUS
     Route: 065
     Dates: start: 2008
  5. ONON [Concomitant]
     Active Substance: PRANLUKAST
     Route: 065
     Dates: start: 2008

REACTIONS (9)
  - Platelet count increased [Unknown]
  - Angioedema [Recovering/Resolving]
  - Scleritis [Recovering/Resolving]
  - Oedema peripheral [Not Recovered/Not Resolved]
  - Asthma [Unknown]
  - Urticaria [Unknown]
  - Sarcoidosis [Unknown]
  - Autoimmune thyroiditis [Not Recovered/Not Resolved]
  - Blood immunoglobulin E increased [Not Recovered/Not Resolved]

NARRATIVE: CASE EVENT DATE: 20130107
